FAERS Safety Report 12314906 (Version 2)
Quarter: 2016Q2

REPORT INFORMATION
  Report Type: Report from Study
  Country: SG (occurrence: SG)
  Receive Date: 20160428
  Receipt Date: 20160504
  Transmission Date: 20160815
  Serious: Yes (Hospitalization)
  Sender: FDA-Public Use
  Company Number: PHHO2016SG006020

PATIENT
  Age: 36 Year
  Sex: Female
  Weight: 110.1 kg

DRUGS (3)
  1. NIVOLUMAB [Suspect]
     Active Substance: NIVOLUMAB
     Indication: NON-SMALL CELL LUNG CANCER
     Dosage: 3 MG/KG, QW2
     Route: 042
     Dates: start: 20150728, end: 20160407
  2. LDK378 [Suspect]
     Active Substance: CERITINIB
     Indication: NON-SMALL CELL LUNG CANCER
     Dosage: 450 MG, QD
     Route: 048
     Dates: start: 20150728, end: 20160420
  3. LDK378 [Suspect]
     Active Substance: CERITINIB
     Dosage: 300 MG, UNK
     Route: 048
     Dates: start: 20160426

REACTIONS (2)
  - Non-cardiac chest pain [Recovered/Resolved]
  - Transaminases increased [Recovered/Resolved]

NARRATIVE: CASE EVENT DATE: 20160420
